FAERS Safety Report 25778624 (Version 1)
Quarter: 2025Q3

REPORT INFORMATION
  Report Type: Spontaneous
  Country: TH (occurrence: TH)
  Receive Date: 20250909
  Receipt Date: 20250909
  Transmission Date: 20251021
  Serious: Yes (Hospitalization, Other)
  Sender: NOVARTIS
  Company Number: TH-002147023-NVSC2025TH136105

PATIENT
  Age: 69 Year
  Sex: Female

DRUGS (2)
  1. LETROZOLE [Suspect]
     Active Substance: LETROZOLE
     Indication: Product used for unknown indication
     Route: 065
     Dates: end: 2021
  2. LETROZOLE [Suspect]
     Active Substance: LETROZOLE
     Route: 065
     Dates: end: 20241224

REACTIONS (18)
  - Pleural effusion [Unknown]
  - Metastases to breast [Unknown]
  - Metastases to bone [Unknown]
  - Metastases to lung [Unknown]
  - Metastases to pleura [Unknown]
  - Metastases to lung [Unknown]
  - Metastases to lymph nodes [Unknown]
  - Lymphadenopathy [Unknown]
  - Bone lesion [Unknown]
  - Mass [Unknown]
  - Cough [Unknown]
  - Dyspnoea [Unknown]
  - Decreased appetite [Unknown]
  - Weight decreased [Unknown]
  - Chest wall mass [Unknown]
  - Mediastinal mass [Unknown]
  - Human epidermal growth factor receptor negative [Unknown]
  - Fatigue [Unknown]

NARRATIVE: CASE EVENT DATE: 20240206
